FAERS Safety Report 20731781 (Version 1)
Quarter: 2022Q2

REPORT INFORMATION
  Report Type: Spontaneous
  Country: UA (occurrence: UA)
  Receive Date: 20220420
  Receipt Date: 20220420
  Transmission Date: 20220720
  Serious: Yes (Other)
  Sender: FDA-Public Use
  Company Number: UA-ViiV Healthcare Limited-UA2022EME066035

PATIENT
  Sex: Male

DRUGS (5)
  1. DOLUTEGRAVIR [Suspect]
     Active Substance: DOLUTEGRAVIR
     Indication: HIV infection
     Dosage: UNK
     Dates: start: 201905
  2. TENOFOVIR DISOPROXIL FUMARATE [Suspect]
     Active Substance: TENOFOVIR DISOPROXIL FUMARATE
     Indication: HIV infection
     Dosage: UNK
     Dates: start: 201905, end: 201909
  3. LAMIVUDINE [Suspect]
     Active Substance: LAMIVUDINE
     Indication: HIV infection
     Dosage: UNK
     Dates: start: 201909
  4. ABACAVIR [Suspect]
     Active Substance: ABACAVIR
     Indication: HIV infection
     Dosage: UNK
     Dates: start: 201909
  5. EMTRICITABINE [Suspect]
     Active Substance: EMTRICITABINE
     Indication: HIV infection
     Dosage: UNK
     Dates: start: 201905, end: 201909

REACTIONS (13)
  - Arthritis viral [Unknown]
  - Polyarthritis [Unknown]
  - Amyotrophy [Unknown]
  - Peripheral spondyloarthritis [Unknown]
  - Osteomalacia [Unknown]
  - Leukopenia [Unknown]
  - Arthralgia [Unknown]
  - Muscle atrophy [Unknown]
  - Weight decreased [Unknown]
  - Joint warmth [Unknown]
  - Arthropathy [Unknown]
  - Articular disc disorder [Unknown]
  - Inflammation [Unknown]
